FAERS Safety Report 19833120 (Version 1)
Quarter: 2021Q3

REPORT INFORMATION
  Report Type: Spontaneous
  Country: US (occurrence: US)
  Receive Date: 20210915
  Receipt Date: 20210915
  Transmission Date: 20211014
  Serious: No
  Sender: FDA-Public Use
  Company Number: US-SA-2021SA301603

PATIENT
  Age: 59 Year
  Sex: Male

DRUGS (1)
  1. JEVTANA [Suspect]
     Active Substance: CABAZITAXEL
     Indication: METASTASES TO ADRENALS
     Dosage: 10 MG, Q3W
     Route: 065

REACTIONS (1)
  - Off label use [Unknown]
